FAERS Safety Report 20736358 (Version 2)
Quarter: 2022Q2

REPORT INFORMATION
  Report Type: Spontaneous
  Country: ES (occurrence: ES)
  Receive Date: 20220421
  Receipt Date: 20220426
  Transmission Date: 20220721
  Serious: Yes (Other)
  Sender: FDA-Public Use
  Company Number: ES-009507513-2203ESP007253

PATIENT
  Age: 17 Year
  Sex: Male
  Weight: 36 kg

DRUGS (2)
  1. LETERMOVIR [Suspect]
     Active Substance: LETERMOVIR
     Indication: Antiviral prophylaxis
     Dosage: 480 MILLIGRAM, DAILY (QD)
     Route: 048
     Dates: start: 20211112, end: 202201
  2. LETERMOVIR [Suspect]
     Active Substance: LETERMOVIR
     Dosage: 480 MILLIGRAM, DAILY (QD)
     Route: 048
     Dates: start: 2022

REACTIONS (4)
  - Neutropenia [Recovered/Resolved]
  - Cytomegalovirus test positive [Recovered/Resolved]
  - Incorrect product administration duration [Unknown]
  - Product use issue [Unknown]

NARRATIVE: CASE EVENT DATE: 20211225
